FAERS Safety Report 15485394 (Version 1)
Quarter: 2018Q4

REPORT INFORMATION
  Report Type: Spontaneous
  Country: US (occurrence: US)
  Receive Date: 20181010
  Receipt Date: 20181010
  Transmission Date: 20190205
  Serious: No
  Sender: FDA-Public Use
  Company Number: US-ROCHE-2152704

PATIENT
  Sex: Male

DRUGS (11)
  1. SAW PALMETTO [Concomitant]
     Active Substance: HERBALS\SAW PALMETTO
  2. ESBRIET [Suspect]
     Active Substance: PIRFENIDONE
     Dosage: 3 TABS WITH MEALS
     Route: 048
  3. MELOXICAM. [Concomitant]
     Active Substance: MELOXICAM
  4. FLUTICASONE PROPIONATE. [Concomitant]
     Active Substance: FLUTICASONE PROPIONATE
  5. GLUCOSAMINE SULFATE [Concomitant]
     Active Substance: GLUCOSAMINE SULFATE
  6. LORATADINE. [Concomitant]
     Active Substance: LORATADINE
  7. MULTIVITAMIN [Concomitant]
     Active Substance: VITAMINS
  8. ONDANSETRON [Concomitant]
     Active Substance: ONDANSETRON
  9. ESBRIET [Suspect]
     Active Substance: PIRFENIDONE
     Dosage: 2 TABS FOR 1 WEEK
     Route: 048
  10. PREDNISONE. [Concomitant]
     Active Substance: PREDNISONE
  11. ESBRIET [Suspect]
     Active Substance: PIRFENIDONE
     Indication: IDIOPATHIC PULMONARY FIBROSIS
     Dosage: 1 TAB FOR 1 WEEK
     Route: 048
     Dates: start: 20180707

REACTIONS (1)
  - Cough [Not Recovered/Not Resolved]
